FAERS Safety Report 5721185-0 (Version None)
Quarter: 2008Q2

REPORT INFORMATION
  Report Type: 
  Country: None (occurrence: None)
  Receive Date: 20080429
  Receipt Date: 20080423
  Transmission Date: 20081010
  Serious: Yes (Other)
  Sender: FDA-Public Use
  Company Number: US-GILEAD-2008-0016219

PATIENT
  Sex: Female

DRUGS (6)
  1. LETAIRIS [Suspect]
     Indication: PULMONARY HYPERTENSION
     Route: 048
     Dates: start: 20080415, end: 20080417
  2. IBUPROFEN [Concomitant]
  3. ZOLOFT [Concomitant]
  4. CALCIUM [Concomitant]
  5. LEVOTHYROXINE SODIUM [Concomitant]
  6. REVATIO [Concomitant]

REACTIONS (3)
  - PALPITATIONS [None]
  - SWELLING FACE [None]
  - TREMOR [None]
